FAERS Safety Report 7137148-7 (Version None)
Quarter: 2010Q4

REPORT INFORMATION
  Report Type: 
  Country: None (occurrence: None)
  Receive Date: 20101206
  Receipt Date: 20080917
  Transmission Date: 20110411
  Serious: Yes (Death)
  Sender: FDA-Public Use
  Company Number: US-ACTELION-A-US2006-13606

PATIENT

DRUGS (1)
  1. TRACLEER [Suspect]
     Indication: PULMONARY HYPERTENSION
     Route: 048
     Dates: start: 20060901

REACTIONS (9)
  - ABDOMINAL PAIN UPPER [None]
  - ANAEMIA [None]
  - ASTHENIA [None]
  - CONDITION AGGRAVATED [None]
  - DEATH [None]
  - DYSPNOEA [None]
  - FATIGUE [None]
  - INSOMNIA [None]
  - JOINT SWELLING [None]
